FAERS Safety Report 15870092 (Version 1)
Quarter: 2019Q1

REPORT INFORMATION
  Report Type: Other
  Country: US (occurrence: US)
  Receive Date: 20190125
  Receipt Date: 20190125
  Transmission Date: 20190417
  Serious: No
  Sender: FDA-Public Use
  Company Number: US-ACORDA-ACO_148862_2018

PATIENT
  Age: 56 Year
  Sex: Male

DRUGS (1)
  1. AMPYRA [Suspect]
     Active Substance: DALFAMPRIDINE
     Indication: MULTIPLE SCLEROSIS
     Dosage: 10 MG, UNK
     Route: 065

REACTIONS (5)
  - Central nervous system lesion [Unknown]
  - Memory impairment [Unknown]
  - Gait disturbance [Unknown]
  - Condition aggravated [Unknown]
  - Hypokinesia [Unknown]

NARRATIVE: CASE EVENT DATE: 201712
